FAERS Safety Report 8257587-0 (Version None)
Quarter: 2012Q2

REPORT INFORMATION
  Report Type: 
  Country: None (occurrence: None)
  Receive Date: 20120403
  Receipt Date: 20120329
  Transmission Date: 20120825
  Serious: Yes (Hospitalization)
  Sender: FDA-Public Use
  Company Number: DE-ELI_LILLY_AND_COMPANY-DE201203002522

PATIENT
  Sex: Male
  Weight: 137 kg

DRUGS (5)
  1. AMARYL [Concomitant]
     Dosage: 4 MG, QD
  2. ALPHA-LIPONSAEURE [Concomitant]
  3. METFORMIN HCL [Concomitant]
     Dosage: 1000 MG, BID
  4. BYDUREON [Suspect]
     Indication: TYPE 2 DIABETES MELLITUS
     Dosage: 2 MG, WEEKLY (1/W)
     Route: 058
     Dates: start: 20110922, end: 20120130
  5. CORVO [Concomitant]
     Dosage: 10 MG, QD

REACTIONS (1)
  - RECTAL CANCER STAGE II [None]
